FAERS Safety Report 22324386 (Version 1)
Quarter: 2023Q2

REPORT INFORMATION
  Report Type: Report from Study
  Country: US (occurrence: None)
  Receive Date: 20230516
  Receipt Date: 20230516
  Transmission Date: 20230722
  Serious: Yes (Hospitalization)
  Sender: FDA-Public Use
  Company Number: US-Eisai Medical Research-EC-2023-138274

PATIENT
  Age: 78 Year
  Sex: Female

DRUGS (3)
  1. LENVIMA [Suspect]
     Active Substance: LENVATINIB
     Indication: Fallopian tube cancer
     Route: 048
     Dates: start: 20230411, end: 20230502
  2. KEYTRUDA [Concomitant]
     Active Substance: PEMBROLIZUMAB
  3. ZOFRAN [Concomitant]
     Active Substance: ONDANSETRON HYDROCHLORIDE

REACTIONS (8)
  - Vaginal haemorrhage [Unknown]
  - Urinary tract infection [Unknown]
  - Gastrointestinal infection [Unknown]
  - Cough [Unknown]
  - Abdominal pain upper [Unknown]
  - Muscle spasms [Unknown]
  - Vomiting [Unknown]
  - Product packaging counterfeit [Unknown]

NARRATIVE: CASE EVENT DATE: 20230101
